FAERS Safety Report 15123929 (Version 1)
Quarter: 2018Q3

REPORT INFORMATION
  Report Type: Spontaneous
  Country: JP (occurrence: JP)
  Receive Date: 20180710
  Receipt Date: 20180710
  Transmission Date: 20181010
  Serious: Yes (Life-Threatening, Hospitalization)
  Sender: FDA-Public Use
  Company Number: JP-TEVA-2018-JP-922002

PATIENT
  Age: 18 Year
  Sex: Female

DRUGS (1)
  1. EPOPROSTENOL. [Suspect]
     Active Substance: EPOPROSTENOL
     Indication: DRUG THERAPY
     Dosage: 37 NG/KG/MIN
     Route: 042

REACTIONS (3)
  - Haemoptysis [Recovered/Resolved]
  - Pulmonary haemorrhage [Recovering/Resolving]
  - Thrombocytopenia [Recovering/Resolving]
